FAERS Safety Report 20780165 (Version 1)
Quarter: 2022Q2

REPORT INFORMATION
  Report Type: Spontaneous
  Country: CA (occurrence: CA)
  Receive Date: 20220503
  Receipt Date: 20220503
  Transmission Date: 20220720
  Serious: Yes (Other)
  Sender: FDA-Public Use
  Company Number: CA-JNJFOC-20220457418

PATIENT
  Age: 51 Year
  Sex: Male
  Weight: 70 kg

DRUGS (1)
  1. REMICADE [Suspect]
     Active Substance: INFLIXIMAB
     Indication: Crohn^s disease
     Route: 042

REACTIONS (5)
  - Crohn^s disease [Unknown]
  - Frustration tolerance decreased [Unknown]
  - Stress [Unknown]
  - Inappropriate schedule of product administration [Unknown]
  - Off label use [Unknown]
